FAERS Safety Report 7851976-1 (Version None)
Quarter: 2011Q3

REPORT INFORMATION
  Report Type: 
  Country: None (occurrence: None)
  Receive Date: 20110906
  Receipt Date: 20110625
  Transmission Date: 20111222
  Serious: No
  Sender: FDA-Public Use
  Company Number: 201106058

PATIENT
  Sex: Female

DRUGS (1)
  1. XIAFLEX [Suspect]
     Indication: PRODUCT USED FOR UNKNOWN INDICATION
     Dosage: INTRALESIONAL
     Route: 026

REACTIONS (2)
  - ROAD TRAFFIC ACCIDENT [None]
  - NO ADVERSE EVENT [None]
